FAERS Safety Report 14370444 (Version 1)
Quarter: 2018Q1

REPORT INFORMATION
  Report Type: Report from Study
  Country: DE (occurrence: DE)
  Receive Date: 20180110
  Receipt Date: 20180110
  Transmission Date: 20180509
  Serious: Yes (Hospitalization, Other)
  Sender: FDA-Public Use
  Company Number: DE-BAUSCH-BL-2017-036275

PATIENT
  Age: 69 Year
  Sex: Male
  Weight: 100 kg

DRUGS (10)
  1. GABAPENTIN. [Concomitant]
     Active Substance: GABAPENTIN
     Indication: PAIN
     Route: 048
     Dates: start: 201604
  2. TAMOXIFEN [Concomitant]
     Active Substance: TAMOXIFEN
     Indication: BREAST CANCER
     Route: 048
     Dates: start: 2016
  3. ENTRESTO [Suspect]
     Active Substance: SACUBITRIL\VALSARTAN
     Dosage: 49/51 MG
     Route: 048
     Dates: start: 20170427
  4. TORASEMIDE [Concomitant]
     Active Substance: TORSEMIDE
     Indication: CARDIAC FAILURE
     Route: 048
     Dates: start: 2013
  5. ENTRESTO [Suspect]
     Active Substance: SACUBITRIL\VALSARTAN
     Indication: CARDIAC FAILURE CHRONIC
     Dosage: 24/26 MG
     Route: 048
     Dates: start: 20160923, end: 20161011
  6. DICLOFENAC [Suspect]
     Active Substance: DICLOFENAC
     Indication: PAIN IN EXTREMITY
     Route: 048
     Dates: start: 20170410, end: 20170424
  7. XIPAMIDE [Suspect]
     Active Substance: XIPAMIDE
     Indication: PERIPHERAL SWELLING
     Route: 048
     Dates: start: 20170414, end: 20170424
  8. ENTRESTO [Suspect]
     Active Substance: SACUBITRIL\VALSARTAN
     Dosage: 49/51 MG
     Route: 048
     Dates: start: 20161011
  9. ASPIRIN. [Concomitant]
     Active Substance: ASPIRIN
     Indication: CORONARY ARTERY DISEASE
     Route: 048
     Dates: start: 2011
  10. PROCORALAN (IVABRADINE) [Concomitant]
     Active Substance: IVABRADINE
     Indication: CORONARY ARTERY DISEASE
     Dosage: 5 OT, (1)
     Route: 048
     Dates: start: 2011

REACTIONS (10)
  - Blood creatinine increased [Unknown]
  - Peripheral swelling [Unknown]
  - Skin ulcer [Recovered/Resolved]
  - Pain in extremity [Unknown]
  - Glomerular filtration rate decreased [Unknown]
  - Arteriosclerosis [Not Recovered/Not Resolved]
  - Concomitant disease aggravated [Not Recovered/Not Resolved]
  - Inflammation [Unknown]
  - Peripheral arterial occlusive disease [Recovering/Resolving]
  - Renal failure [Recovering/Resolving]

NARRATIVE: CASE EVENT DATE: 20170406
